FAERS Safety Report 4794840-7 (Version None)
Quarter: 2005Q3

REPORT INFORMATION
  Report Type: 
  Country: None (occurrence: None)
  Receive Date: 20050914
  Receipt Date: 20040903
  Transmission Date: 20060218
  Serious: Yes (Hospitalization)
  Sender: FDA-Public Use
  Company Number: 163-20785-04090142

PATIENT
  Age: 67 Year
  Sex: Male

DRUGS (12)
  1. THALOMID [Suspect]
     Indication: MULTIPLE MYELOMA
     Dosage: 200 MG, DAILY, ORAL
     Route: 048
     Dates: start: 20040803, end: 20040806
  2. BORTEZOMIB (BORTEZOMIB) [Suspect]
     Indication: MULTIPLE MYELOMA
     Dosage: 1.9 MG, DAILY, INTRAVENOUS; 1.9 MG, DAILY, INTRAVENOUS; DAILY
     Route: 042
     Dates: start: 20040731, end: 20040731
  3. BORTEZOMIB (BORTEZOMIB) [Suspect]
     Indication: MULTIPLE MYELOMA
     Dosage: 1.9 MG, DAILY, INTRAVENOUS; 1.9 MG, DAILY, INTRAVENOUS; DAILY
     Route: 042
     Dates: start: 20040803, end: 20040803
  4. BORTEZOMIB (BORTEZOMIB) [Suspect]
     Indication: MULTIPLE MYELOMA
     Dosage: 1.9 MG, DAILY, INTRAVENOUS; 1.9 MG, DAILY, INTRAVENOUS; DAILY
     Route: 042
     Dates: start: 20040807, end: 20040807
  5. ADRIAMYCIN PFS [Suspect]
     Indication: MULTIPLE MYELOMA
     Dosage: 19 MG, DAILY, INTRAVENOUS
     Route: 042
     Dates: start: 20040803, end: 20040806
  6. CYCLOPHOSPHAMIDE [Suspect]
     Indication: MULTIPLE MYELOMA
     Dosage: 764 MG, DAILY, INTRAVENOUS
     Route: 042
     Dates: start: 20040803, end: 20040806
  7. ETOPOSIDE [Suspect]
     Indication: MULTIPLE MYELOMA
     Dosage: 76 MG, DAILY, INTRAVENOUS
     Route: 042
     Dates: start: 20040803, end: 20040806
  8. NORVASC [Concomitant]
  9. PREVACID [Concomitant]
  10. DARVOCET [Concomitant]
  11. MULTI-VITAMINS [Concomitant]
  12. MELPHALAN [Concomitant]

REACTIONS (8)
  - CARDIAC FAILURE CONGESTIVE [None]
  - MENTAL STATUS CHANGES [None]
  - NEPHROPATHY [None]
  - NEPHROSCLEROSIS [None]
  - PNEUMONIA [None]
  - RENAL FAILURE [None]
  - RENAL TUBULAR DISORDER [None]
  - THROMBOSIS [None]
